FAERS Safety Report 16832758 (Version 1)
Quarter: 2019Q3

REPORT INFORMATION
  Report Type: Spontaneous
  Country: US (occurrence: US)
  Receive Date: 20190920
  Receipt Date: 20190920
  Transmission Date: 20191005
  Serious: No
  Sender: FDA-Public Use
  Company Number: US-009507513-1909USA008000

PATIENT
  Age: 46 Year
  Sex: Male

DRUGS (7)
  1. BEVACIZUMAB. [Concomitant]
     Active Substance: BEVACIZUMAB
     Indication: PITUITARY TUMOUR
  2. TEMODAR [Suspect]
     Active Substance: TEMOZOLOMIDE
     Indication: PITUITARY TUMOUR
     Route: 048
  3. CYCLOPHOSPHAMIDE (+) DACARBAZINE (+) DOXORUBICIN (+) VINCRISTINE SULFA [Concomitant]
     Indication: PITUITARY TUMOUR
  4. CAPECITABINE. [Concomitant]
     Active Substance: CAPECITABINE
     Indication: PITUITARY TUMOUR
  5. ETOPOSIDE. [Concomitant]
     Active Substance: ETOPOSIDE
     Indication: PITUITARY TUMOUR
  6. CISPLATIN. [Concomitant]
     Active Substance: CISPLATIN
     Indication: PITUITARY TUMOUR
  7. PACLITAXEL. [Concomitant]
     Active Substance: PACLITAXEL
     Indication: PITUITARY TUMOUR

REACTIONS (1)
  - Off label use [Unknown]
